FAERS Safety Report 8449571-9 (Version None)
Quarter: 2012Q2

REPORT INFORMATION
  Report Type: 
  Country: None (occurrence: None)
  Receive Date: 20120620
  Receipt Date: 20120608
  Transmission Date: 20120825
  Serious: Yes (Other)
  Sender: FDA-Public Use
  Company Number: TR-AMGEN-TURSP2012036760

PATIENT
  Sex: Male

DRUGS (2)
  1. ENBREL [Suspect]
     Indication: RHEUMATOID ARTHRITIS
     Dosage: 50 MG, WEEKLY
     Route: 058
     Dates: start: 20090722, end: 20120101
  2. ENBREL [Suspect]
     Dosage: 50 MG, WEEKLY
     Dates: start: 20120101

REACTIONS (5)
  - PAIN [None]
  - ARTHRALGIA [None]
  - BACK PAIN [None]
  - HYPOKINESIA [None]
  - MUSCLE SPASMS [None]
